FAERS Safety Report 7027991-7 (Version None)
Quarter: 2010Q4

REPORT INFORMATION
  Report Type: 
  Country: None (occurrence: None)
  Receive Date: 20101005
  Receipt Date: 20100930
  Transmission Date: 20110411
  Serious: Yes (Hospitalization)
  Sender: FDA-Public Use
  Company Number: FR-WYE-G06750210

PATIENT
  Sex: Female

DRUGS (7)
  1. RHINADVIL [Suspect]
     Indication: HEADACHE
     Dosage: A TOTAL OF 3 TO 4 TABLETS IN 2 DAYS
     Route: 048
     Dates: start: 20100204, end: 20100205
  2. BUDESONIDE [Suspect]
     Indication: SINUSITIS
     Dosage: UNKNOWN
     Route: 055
     Dates: start: 20100204, end: 20100205
  3. DUPHASTON [Concomitant]
     Indication: SINUSITIS
     Dosage: UNKNOWN
     Route: 048
  4. PARACETAMOL [Concomitant]
     Indication: SINUSITIS
     Dosage: UNKNOWN
     Route: 048
     Dates: start: 20100204
  5. IBUPROFEN [Suspect]
     Indication: SINUSITIS
     Dosage: UNKNOWN
     Route: 048
     Dates: start: 20100204, end: 20100205
  6. CEFUROXIME [Suspect]
     Indication: SINUSITIS
     Dosage: UNKNOWN
     Route: 048
     Dates: start: 20100204, end: 20100205
  7. SEROPLEX [Suspect]
     Dosage: UNKNOWN
     Route: 048

REACTIONS (3)
  - ABNORMAL BEHAVIOUR [None]
  - DISORIENTATION [None]
  - THROMBOCYTOPENIA [None]
